FAERS Safety Report 11980894 (Version 1)
Quarter: 2016Q1

REPORT INFORMATION
  Report Type: Spontaneous
  Country: GB (occurrence: GB)
  Receive Date: 20160129
  Receipt Date: 20160129
  Transmission Date: 20160526
  Serious: Yes (Other)
  Sender: FDA-Public Use
  Company Number: GB-GLAXOSMITHKLINE-GB2016009517

PATIENT
  Age: 27 Year
  Sex: Female
  Weight: 67.58 kg

DRUGS (2)
  1. LAMICTAL [Suspect]
     Active Substance: LAMOTRIGINE
     Indication: EPILEPSY
     Dosage: GRADUALLY INCREASED THE DOSAGE.
     Route: 048
     Dates: end: 20151105
  2. CERAZETTE [Concomitant]
     Active Substance: DESOGESTREL

REACTIONS (3)
  - Headache [Recovered/Resolved]
  - Contusion [Recovered/Resolved]
  - Nausea [Recovered/Resolved]

NARRATIVE: CASE EVENT DATE: 20151008
